FAERS Safety Report 7688126-0 (Version None)
Quarter: 2011Q3

REPORT INFORMATION
  Report Type: 
  Country: None (occurrence: None)
  Receive Date: 20110817
  Receipt Date: 20110805
  Transmission Date: 20111222
  Serious: Yes (Other)
  Sender: FDA-Public Use
  Company Number: CA-ELI_LILLY_AND_COMPANY-CA201108002004

PATIENT

DRUGS (9)
  1. ZYPREXA [Suspect]
     Dosage: 5 MG, UNKNOWN
  2. PROZAC [Concomitant]
  3. VALPROATE SODIUM [Concomitant]
  4. LITHIUM [Concomitant]
  5. ZYPREXA [Suspect]
     Dosage: 15 MG, UNKNOWN
  6. ZYPREXA ZYDIS [Suspect]
     Dosage: 10 MG, UNKNOWN
  7. ZYPREXA [Suspect]
     Dosage: 10 MG, BID
  8. ZYPREXA ZYDIS [Suspect]
     Dosage: 5 MG, UNKNOWN
  9. ZIPRASIDONE HYDROCHLORIDE [Concomitant]

REACTIONS (5)
  - DYSLIPIDAEMIA [None]
  - DIABETES MELLITUS [None]
  - HYPERTENSION [None]
  - WEIGHT INCREASED [None]
  - VISUAL IMPAIRMENT [None]
